FAERS Safety Report 5028280-2 (Version None)
Quarter: 2006Q2

REPORT INFORMATION
  Report Type: 
  Country: None (occurrence: None)
  Receive Date: 20060612
  Receipt Date: 20060525
  Transmission Date: 20061013
  Serious: Yes (Hospitalization, Disabling)
  Sender: FDA-Public Use
  Company Number: 87683

PATIENT
  Age: 22 Year
  Sex: Female
  Weight: 46.7 kg

DRUGS (4)
  1. ACCUTANE [Suspect]
     Indication: ACNE
     Dosage: 20 MG DAILY ORAL
     Route: 048
     Dates: start: 19950923, end: 19951120
  2. PREVACID [Concomitant]
  3. PREDNISONE TAB [Concomitant]
  4. ORTHO TRI-CYCLEN [Concomitant]

REACTIONS (92)
  - ABDOMINAL DISTENSION [None]
  - ABDOMINAL PAIN [None]
  - ABDOMINAL PAIN UPPER [None]
  - ALOPECIA [None]
  - ANAEMIA [None]
  - ANGER [None]
  - ANOREXIA [None]
  - ANXIETY [None]
  - ARTHRALGIA [None]
  - ARTHRITIS [None]
  - BACK PAIN [None]
  - BILIARY DYSKINESIA [None]
  - BLOOD PRESSURE ORTHOSTATIC [None]
  - BONE PAIN [None]
  - BULIMIA NERVOSA [None]
  - CHEST PAIN [None]
  - CHOLECYSTITIS [None]
  - COLITIS [None]
  - COLITIS ULCERATIVE [None]
  - COLONIC STENOSIS [None]
  - CONFUSIONAL STATE [None]
  - CONSTIPATION [None]
  - CONTUSION [None]
  - CROHN'S DISEASE [None]
  - DECREASED APPETITE [None]
  - DEHYDRATION [None]
  - DEPRESSION [None]
  - DIARRHOEA [None]
  - DIZZINESS [None]
  - DIZZINESS POSTURAL [None]
  - DRY SKIN [None]
  - EATING DISORDER [None]
  - EPISCLERITIS [None]
  - FATIGUE [None]
  - FEAR [None]
  - FEAR OF WEIGHT GAIN [None]
  - GALLBLADDER DISORDER [None]
  - GASTRIC DISORDER [None]
  - GASTRITIS [None]
  - GINGIVAL RECESSION [None]
  - HAEMANGIOMA [None]
  - HAEMATOCHEZIA [None]
  - HEADACHE [None]
  - HEPATIC CYST [None]
  - HEPATIC STEATOSIS [None]
  - HOSTILITY [None]
  - HYPOCHROMIC ANAEMIA [None]
  - INFLAMMATORY BOWEL DISEASE [None]
  - INTERSTITIAL LUNG DISEASE [None]
  - IRON DEFICIENCY [None]
  - IRRITABLE BOWEL SYNDROME [None]
  - JAW DISORDER [None]
  - LIPASE DECREASED [None]
  - MAJOR DEPRESSION [None]
  - MALABSORPTION [None]
  - MEMORY IMPAIRMENT [None]
  - MITRAL VALVE INCOMPETENCE [None]
  - MOOD SWINGS [None]
  - MOVEMENT DISORDER [None]
  - MUSCULAR WEAKNESS [None]
  - MUSCULOSKELETAL DISORDER [None]
  - MYALGIA [None]
  - NAIL DISORDER [None]
  - NAUSEA [None]
  - OBSESSIVE THOUGHTS [None]
  - OBSESSIVE-COMPULSIVE DISORDER [None]
  - OEDEMA PERIPHERAL [None]
  - OPPORTUNISTIC INFECTION [None]
  - OPTIC DISC DRUSEN [None]
  - OVARIAN CYST [None]
  - PAIN [None]
  - PAIN IN EXTREMITY [None]
  - PANIC ATTACK [None]
  - PERIODONTAL DISEASE [None]
  - PHARYNGOLARYNGEAL PAIN [None]
  - POLYARTHRITIS [None]
  - RADICULITIS BRACHIAL [None]
  - RASH [None]
  - RECTAL HAEMORRHAGE [None]
  - REFUSAL OF TREATMENT BY PATIENT [None]
  - SHOULDER PAIN [None]
  - SLEEP DISORDER [None]
  - SUICIDAL IDEATION [None]
  - SYNCOPE [None]
  - TENDONITIS [None]
  - THROMBOCYTOPENIA [None]
  - TONSILLECTOMY [None]
  - ULCER [None]
  - UVEITIS [None]
  - VIRAL INFECTION [None]
  - VOMITING [None]
  - WEIGHT INCREASED [None]
